FAERS Safety Report 18773405 (Version 1)
Quarter: 2021Q1

REPORT INFORMATION
  Report Type: Spontaneous
  Country: US (occurrence: US)
  Receive Date: 20210121
  Receipt Date: 20210121
  Transmission Date: 20210419
  Serious: Yes (Hospitalization)
  Sender: FDA-Public Use
  Company Number: None

PATIENT
  Age: 34 Year
  Sex: Male
  Weight: 89 kg

DRUGS (2)
  1. PRAZOSIN (PRAZOSIN HCL 2MG CAP) [Suspect]
     Active Substance: PRAZOSIN
     Indication: SLEEP DISORDER
     Route: 048
     Dates: start: 20190702, end: 20201014
  2. HYDROXYZINE (HYDROXYZINE HCL 50MG TAB) [Suspect]
     Active Substance: HYDROXYZINE HYDROCHLORIDE
     Indication: SLEEP DISORDER
     Route: 048
     Dates: start: 20191210, end: 20201014

REACTIONS (1)
  - Priapism [None]

NARRATIVE: CASE EVENT DATE: 20201014
